FAERS Safety Report 6723195-3 (Version None)
Quarter: 2010Q2

REPORT INFORMATION
  Report Type: 
  Country: None (occurrence: None)
  Receive Date: 20100513
  Receipt Date: 20100505
  Transmission Date: 20101027
  Serious: Yes (Hospitalization)
  Sender: FDA-Public Use
  Company Number: SE-JNJFOC-20100501503

PATIENT
  Sex: Female

DRUGS (6)
  1. CILEST [Suspect]
     Indication: DRUG USE FOR UNKNOWN INDICATION
     Route: 048
  2. BRICANYL [Concomitant]
     Route: 055
  3. CONCERTA [Concomitant]
     Route: 048
  4. PULMICORT [Concomitant]
     Route: 055
  5. NAPROXEN [Concomitant]
     Route: 065
  6. IMOVANE [Concomitant]
     Route: 065

REACTIONS (6)
  - DIARRHOEA [None]
  - NAUSEA [None]
  - PULMONARY EMBOLISM [None]
  - RENAL INFARCT [None]
  - SPLENIC INFARCTION [None]
  - VOMITING [None]
